FAERS Safety Report 6676697-2 (Version None)
Quarter: 2010Q2

REPORT INFORMATION
  Report Type: 
  Country: None (occurrence: None)
  Receive Date: 20100412
  Receipt Date: 20100330
  Transmission Date: 20101027
  Serious: Yes (Hospitalization, Other)
  Sender: FDA-Public Use
  Company Number: FR-ROCHE-674647

PATIENT
  Sex: Female
  Weight: 51.2 kg

DRUGS (10)
  1. BEVACIZUMAB [Suspect]
     Indication: SARCOMA
     Dosage: FORM REPORTED AS: 7.5 MG/KG. LAST DOSE PRIOR TO SAE 03 FEBUARY 2010.
     Route: 042
     Dates: start: 20091128
  2. DOXORUBICIN HCL [Suspect]
     Indication: SARCOMA
     Dosage: FORM: 30MG/M2. LAST DOSE PRIOR TO SAE: 05 FEBRUARY 2010.
     Route: 042
     Dates: start: 20091128
  3. ACTINOMYCIN D [Suspect]
     Indication: SARCOMA
     Dosage: FORM: 1.5 MG/M2.  THE MOST RECENT DOSE WAS 23 FEBUARY 2010.
     Route: 042
     Dates: start: 20091128
  4. VINCRISTINE [Suspect]
     Indication: SARCOMA
     Dosage: FORM: 1.5 MG/M2. TEMPORARILY STOPPED.
     Route: 042
     Dates: start: 20091128, end: 20091204
  5. VINCRISTINE [Suspect]
     Dosage: THE LAST DOSE PRIOR TO SAE 03 FEBUARY 2010.
     Route: 042
     Dates: start: 20091211
  6. IFOSFAMIDE [Suspect]
     Indication: SARCOMA
     Dosage: DOSE FORM: 6G/M2.
     Route: 042
     Dates: start: 20091128
  7. IFOSFAMIDE [Suspect]
     Dosage: DOSAGE FORM:6G/ME2
     Route: 042
     Dates: start: 20091228
  8. SULFAMETHOXAZOLE [Concomitant]
     Dosage: DRUG:SULFAMETHOXAZOLE (BACTRIM)
     Dates: start: 20091130
  9. ZOPHREN [Concomitant]
     Dates: start: 20091204
  10. PARACETAMOL [Concomitant]
     Dates: start: 20091212, end: 20091217

REACTIONS (5)
  - ANAEMIA [None]
  - FEBRILE NEUTROPENIA [None]
  - PNEUMOTHORAX [None]
  - VOMITING [None]
  - WEIGHT DECREASED [None]
